FAERS Safety Report 13381065 (Version 4)
Quarter: 2017Q4

REPORT INFORMATION
  Report Type: Spontaneous
  Country: US (occurrence: US)
  Receive Date: 20170329
  Receipt Date: 20171010
  Transmission Date: 20180320
  Serious: Yes (Hospitalization, Other)
  Sender: FDA-Public Use
  Company Number: US-PFIZER INC-2017131916

PATIENT
  Age: 44 Year
  Sex: Female
  Weight: 68.27 kg

DRUGS (8)
  1. LYRICA [Suspect]
     Active Substance: PREGABALIN
     Indication: FIBROMYALGIA
     Dosage: 75 MG, 3X/DAY
     Route: 048
  2. LYRICA [Suspect]
     Active Substance: PREGABALIN
     Indication: NEUROPATHY PERIPHERAL
     Dosage: 150 MG, 2X/DAY
     Route: 048
  3. ZYPREXA [Concomitant]
     Active Substance: OLANZAPINE
     Indication: PARANOIA
     Dosage: 20 MG, 1X/DAY(ONE AT NIGHT)
     Route: 048
     Dates: start: 1999
  4. XANAX [Concomitant]
     Active Substance: ALPRAZOLAM
     Indication: ANXIETY
     Dosage: 1 MG, 3X/DAY
     Dates: start: 2001
  5. XANAX [Concomitant]
     Active Substance: ALPRAZOLAM
     Indication: POST-TRAUMATIC STRESS DISORDER
  6. LYRICA [Suspect]
     Active Substance: PREGABALIN
     Indication: SEIZURE
     Dosage: 150 MG, 4X/DAY
     Route: 048
     Dates: start: 201408
  7. LYRICA [Suspect]
     Active Substance: PREGABALIN
     Indication: DEPRESSION
  8. ADDERALL [Concomitant]
     Active Substance: AMPHETAMINE ASPARTATE\AMPHETAMINE SULFATE\DEXTROAMPHETAMINE SACCHARATE\DEXTROAMPHETAMINE SULFATE
     Indication: ATTENTION DEFICIT/HYPERACTIVITY DISORDER
     Dosage: 30 MG, 1X/DAY
     Dates: start: 2013

REACTIONS (33)
  - Hot flush [Not Recovered/Not Resolved]
  - Dysphonia [Not Recovered/Not Resolved]
  - Stress [Not Recovered/Not Resolved]
  - Nervous system disorder [Unknown]
  - Amenorrhoea [Not Recovered/Not Resolved]
  - Seizure [Unknown]
  - Dyspnoea [Unknown]
  - Arthralgia [Unknown]
  - Drug ineffective [Not Recovered/Not Resolved]
  - Constipation [Not Recovered/Not Resolved]
  - Feeling of relaxation [Not Recovered/Not Resolved]
  - Pre-existing condition improved [Not Recovered/Not Resolved]
  - Drug dispensing error [Unknown]
  - Insomnia [Not Recovered/Not Resolved]
  - Energy increased [Unknown]
  - Intentional product use issue [Not Recovered/Not Resolved]
  - Loss of consciousness [Unknown]
  - Loss of personal independence in daily activities [Not Recovered/Not Resolved]
  - Condition aggravated [Not Recovered/Not Resolved]
  - Therapeutic response unexpected [Not Recovered/Not Resolved]
  - Hypersomnia [Unknown]
  - Suicidal ideation [Unknown]
  - Headache [Recovered/Resolved]
  - Rhinorrhoea [Unknown]
  - Drug tolerance [Unknown]
  - Fatigue [Not Recovered/Not Resolved]
  - Back pain [Unknown]
  - Decreased appetite [Not Recovered/Not Resolved]
  - Night sweats [Not Recovered/Not Resolved]
  - Depression [Not Recovered/Not Resolved]
  - Condition aggravated [Not Recovered/Not Resolved]
  - Pain [Not Recovered/Not Resolved]
  - Nasal congestion [Unknown]

NARRATIVE: CASE EVENT DATE: 2014
